FAERS Safety Report 15436674 (Version 5)
Quarter: 2019Q3

REPORT INFORMATION
  Report Type: Spontaneous
  Country: US (occurrence: US)
  Receive Date: 20180927
  Receipt Date: 20190701
  Transmission Date: 20191004
  Serious: Yes (Hospitalization)
  Sender: FDA-Public Use
  Company Number: US-PFIZER INC-2018386214

PATIENT
  Age: 79 Year
  Sex: Female
  Weight: 58.97 kg

DRUGS (5)
  1. LATANOPROST. [Suspect]
     Active Substance: LATANOPROST
     Dosage: 1 GTT, 1X/DAY (QHS (EVERY BEDTIME))
     Dates: start: 2018, end: 201811
  2. DORZOLAMIDE/TIMOLOL [Suspect]
     Active Substance: DORZOLAMIDE\TIMOLOL
     Dosage: UNK
  3. LATANOPROST. [Suspect]
     Active Substance: LATANOPROST
     Indication: GLAUCOMA
     Dosage: 2 GTT, 1X/DAY (ONE DROP IN EACH EYE EVERY NIGHT) (AT BED TIME)
     Route: 047
     Dates: start: 201801
  4. LATANOPROST. [Suspect]
     Active Substance: LATANOPROST
     Dosage: 2 GTT, 1X/DAY (1 DROP BOTH EYES AT BED TIME)
     Route: 047
     Dates: start: 20171106
  5. LATANOPROST. [Suspect]
     Active Substance: LATANOPROST
     Dosage: UNK, 1X/DAY
     Dates: start: 2019

REACTIONS (10)
  - Drug hypersensitivity [Unknown]
  - Eye pruritus [Recovered/Resolved]
  - Vision blurred [Unknown]
  - Product quality issue [Unknown]
  - Eye pain [Unknown]
  - Ocular hyperaemia [Recovered/Resolved]
  - Dry eye [Unknown]
  - Foreign body sensation in eyes [Unknown]
  - Eye irritation [Recovered/Resolved]
  - Fatigue [Not Recovered/Not Resolved]

NARRATIVE: CASE EVENT DATE: 201711
